FAERS Safety Report 12821766 (Version 1)
Quarter: 2016Q4

REPORT INFORMATION
  Report Type: Spontaneous
  Country: GB (occurrence: GB)
  Receive Date: 20161007
  Receipt Date: 20161007
  Transmission Date: 20170207
  Serious: Yes (Other)
  Sender: FDA-Public Use
  Company Number: GB-009507513-1610GBR001420

PATIENT
  Sex: Female

DRUGS (2)
  1. NEXPLANON [Suspect]
     Active Substance: ETONOGESTREL
     Indication: CONTRACEPTION
     Dosage: UNK
     Route: 059
     Dates: start: 20160704
  2. ROACCUTANE [Concomitant]
     Active Substance: ISOTRETINOIN
     Indication: ACNE
     Dosage: GIVEN BY GP, UNSURE ON STARTING DATE OR DOSE

REACTIONS (5)
  - Implant site erythema [Not Recovered/Not Resolved]
  - Pain [Not Recovered/Not Resolved]
  - Implant site papules [Not Recovered/Not Resolved]
  - Device extrusion [Unknown]
  - Device related infection [Not Recovered/Not Resolved]
